FAERS Safety Report 6077606-X (Version None)
Quarter: 2009Q1

REPORT INFORMATION
  Report Type: 
  Country: None (occurrence: None)
  Receive Date: 20090213
  Receipt Date: 20090205
  Transmission Date: 20090719
  Serious: Yes (Other)
  Sender: FDA-Public Use
  Company Number: US-AMGEN-QUU332333

PATIENT
  Sex: Female

DRUGS (2)
  1. ENBREL [Suspect]
     Indication: PSORIATIC ARTHROPATHY
     Route: 058
     Dates: start: 20080313
  2. METHOTREXATE [Concomitant]

REACTIONS (3)
  - BENIGN NEOPLASM OF THYROID GLAND [None]
  - INJECTION SITE PAIN [None]
  - THYROID CANCER [None]
